FAERS Safety Report 9667918 (Version 1)
Quarter: 2013Q4

REPORT INFORMATION
  Report Type: Report from Study
  Country: PK (occurrence: PK)
  Receive Date: 20131104
  Receipt Date: 20131104
  Transmission Date: 20140711
  Serious: Yes (Death)
  Sender: FDA-Public Use
  Company Number: PHHY2013PK124848

PATIENT
  Age: 60 Year
  Sex: Male

DRUGS (1)
  1. CO-DIOVAN [Suspect]
     Indication: HYPERTENSION
     Dosage: 1 DF (VALS 160 MG, HYDR 12.5 MG), QD
     Route: 048
     Dates: start: 20120417, end: 20130905

REACTIONS (1)
  - Death [Fatal]
